FAERS Safety Report 12741900 (Version 1)
Quarter: 2016Q3

REPORT INFORMATION
  Report Type: Spontaneous
  Country: US (occurrence: US)
  Receive Date: 20160913
  Receipt Date: 20160913
  Transmission Date: 20161109
  Serious: No
  Sender: FDA-Public Use
  Company Number: None

PATIENT
  Age: 52 Year
  Sex: Male
  Weight: 85.05 kg

DRUGS (2)
  1. DORZOLAMIDE OPHTHALMIC SOLUTION [Suspect]
     Active Substance: DORZOLAMIDE
     Indication: OPEN ANGLE GLAUCOMA
     Route: 061
     Dates: start: 20151210, end: 20160909
  2. LATANOPROST. [Concomitant]
     Active Substance: LATANOPROST

REACTIONS (2)
  - Pain [None]
  - Vision blurred [None]

NARRATIVE: CASE EVENT DATE: 20160909
